FAERS Safety Report 9141803 (Version 7)
Quarter: 2020Q2

REPORT INFORMATION
  Report Type: Spontaneous
  Country: US (occurrence: US)
  Receive Date: 20130305
  Receipt Date: 20200422
  Transmission Date: 20200714
  Serious: Yes (Hospitalization, Disabling, Other)
  Sender: FDA-Public Use
  Company Number: US-009507513-1103USA00955

PATIENT
  Sex: Female
  Weight: 63.04 kg

DRUGS (7)
  1. FOSAMAX [Suspect]
     Active Substance: ALENDRONATE SODIUM
     Indication: OSTEOPOROSIS
     Dosage: 70 MG, QW
     Route: 048
     Dates: start: 20010126, end: 200802
  2. ALENDRONATE SODIUM. [Suspect]
     Active Substance: ALENDRONATE SODIUM
     Indication: OSTEOPENIA
     Dosage: 70 MG, QW
     Route: 048
     Dates: start: 20080305, end: 201008
  3. TRAMADOL HYDROCHLORIDE. [Suspect]
     Active Substance: TRAMADOL HYDROCHLORIDE
  4. MELOXICAM. [Suspect]
     Active Substance: MELOXICAM
  5. IBUPROFEN. [Suspect]
     Active Substance: IBUPROFEN
  6. FOSAMAX [Suspect]
     Active Substance: ALENDRONATE SODIUM
     Indication: OSTEOPENIA
     Dosage: 10 MG, QD
     Route: 048
     Dates: start: 19991227, end: 200012
  7. ALENDRONATE SODIUM. [Suspect]
     Active Substance: ALENDRONATE SODIUM
     Indication: OSTEOPOROSIS

REACTIONS (58)
  - Low turnover osteopathy [Unknown]
  - Hypomagnesaemia [Unknown]
  - Cataract [Unknown]
  - Osteoarthritis [Unknown]
  - Chronic gastritis [Not Recovered/Not Resolved]
  - Stress [Not Recovered/Not Resolved]
  - Adverse event [Unknown]
  - Blood loss anaemia [Unknown]
  - Large intestinal haemorrhage [Unknown]
  - Hyperglycaemia [Unknown]
  - Dizziness [Unknown]
  - Spinal osteoarthritis [Unknown]
  - Pain in extremity [Recovered/Resolved]
  - Drug ineffective [Not Recovered/Not Resolved]
  - Intervertebral disc degeneration [Not Recovered/Not Resolved]
  - Osteoarthritis [Not Recovered/Not Resolved]
  - Pain in extremity [Unknown]
  - Stress fracture [Unknown]
  - Femur fracture [Recovered/Resolved]
  - Anxiety [Unknown]
  - Blood cholesterol increased [Unknown]
  - Spinal osteoarthritis [Unknown]
  - Diverticulum [Unknown]
  - Gait disturbance [Not Recovered/Not Resolved]
  - Insomnia [Unknown]
  - Dizziness [Unknown]
  - Physiotherapy [Unknown]
  - Osteoporosis [Unknown]
  - Blood loss anaemia [Unknown]
  - Hypertension [Unknown]
  - Cardiac murmur [Unknown]
  - Depression [Unknown]
  - Pain in extremity [Unknown]
  - Chronic kidney disease [Unknown]
  - Fracture nonunion [Recovered/Resolved]
  - Gastritis [Unknown]
  - Oesophagitis [Not Recovered/Not Resolved]
  - Fear-related avoidance of activities [Not Recovered/Not Resolved]
  - Drug intolerance [Unknown]
  - Gastric haemorrhage [Unknown]
  - Hip arthroplasty [Unknown]
  - Osteoarthritis [Unknown]
  - Nodule [Unknown]
  - Arthralgia [Recovered/Resolved]
  - Fear [Not Recovered/Not Resolved]
  - Oesophageal haemorrhage [Unknown]
  - Femur fracture [Unknown]
  - Foot deformity [Unknown]
  - Nocturia [Unknown]
  - Upper limb fracture [Unknown]
  - Body height decreased [Unknown]
  - Dacryostenosis acquired [Unknown]
  - Arthritis [Unknown]
  - Herpes zoster [Unknown]
  - Impaired healing [Recovered/Resolved]
  - Dysphagia [Unknown]
  - Muscle strength abnormal [Not Recovered/Not Resolved]
  - Intervertebral disc protrusion [Unknown]

NARRATIVE: CASE EVENT DATE: 20010719
